FAERS Safety Report 18151828 (Version 2)
Quarter: 2020Q3

REPORT INFORMATION
  Report Type: Spontaneous
  Country: ES (occurrence: ES)
  Receive Date: 20200814
  Receipt Date: 20200826
  Transmission Date: 20201103
  Serious: Yes (Other)
  Sender: FDA-Public Use
  Company Number: ES-VERTEX PHARMACEUTICALS-2020-016272

PATIENT
  Age: 24 Year
  Sex: Female

DRUGS (2)
  1. SYMKEVI [Suspect]
     Active Substance: IVACAFTOR\TEZACAFTOR
     Indication: CYSTIC FIBROSIS
     Dosage: UNK
     Route: 048
     Dates: start: 20200219, end: 20200716
  2. KALYDECO [Suspect]
     Active Substance: IVACAFTOR
     Indication: CYSTIC FIBROSIS
     Dosage: UNK
     Route: 048
     Dates: start: 20200219, end: 20200716

REACTIONS (7)
  - Anxiety [Recovering/Resolving]
  - Depression [Recovering/Resolving]
  - Suicidal ideation [Recovering/Resolving]
  - Insomnia [Recovering/Resolving]
  - Obsessive-compulsive disorder [Recovering/Resolving]
  - Memory impairment [Recovering/Resolving]
  - Agitation [Recovering/Resolving]

NARRATIVE: CASE EVENT DATE: 20200615
